FAERS Safety Report 8251101-1 (Version None)
Quarter: 2012Q2

REPORT INFORMATION
  Report Type: 
  Country: None (occurrence: None)
  Receive Date: 20120402
  Receipt Date: 20120328
  Transmission Date: 20120825
  Serious: Yes (Other)
  Sender: FDA-Public Use
  Company Number: US-PFIZER INC-2012061607

PATIENT
  Sex: Male
  Weight: 96.599 kg

DRUGS (7)
  1. WARFARIN [Concomitant]
     Indication: ARTERIAL OCCLUSIVE DISEASE
     Dosage: 2.5 MG, UNK
  2. LIPITOR [Concomitant]
     Indication: BLOOD CHOLESTEROL INCREASED
     Dosage: 20 MG, UNK
  3. PAXIL [Concomitant]
     Dosage: 20 MG, UNK
  4. LYRICA [Suspect]
     Indication: NEURALGIA
     Dosage: 50 MG, 2X/DAY
     Route: 048
     Dates: start: 20120104, end: 20120110
  5. NORVASC [Concomitant]
     Indication: HYPERTENSION
     Dosage: 5 MG, UNK
  6. CELEBREX [Concomitant]
     Indication: ARTHRITIS
     Dosage: 200 MG, UNK
  7. HYDROCHLOROTHIAZIDE [Concomitant]
     Indication: HYPERTENSION
     Dosage: 25 MG, UNK

REACTIONS (2)
  - VISION BLURRED [None]
  - RESPIRATORY TRACT OEDEMA [None]
